FAERS Safety Report 24256205 (Version 1)
Quarter: 2024Q3

REPORT INFORMATION
  Report Type: Spontaneous
  Country: IR (occurrence: IR)
  Receive Date: 20240827
  Receipt Date: 20240827
  Transmission Date: 20241017
  Serious: Yes (Hospitalization, Other)
  Sender: NOVITIUM PHARMA
  Company Number: IR-NOVITIUMPHARMA-2024IRNVP01686

PATIENT
  Age: 38 Year
  Sex: Female

DRUGS (7)
  1. NAPROXEN [Suspect]
     Active Substance: NAPROXEN
     Indication: Sjogren^s syndrome
  2. NAPROXEN [Suspect]
     Active Substance: NAPROXEN
     Indication: Polyarthritis
  3. HYDROXYCHLOROQUINE SULFATE [Suspect]
     Active Substance: HYDROXYCHLOROQUINE SULFATE
     Indication: Sjogren^s syndrome
  4. PREDNISOLONE [Concomitant]
     Active Substance: PREDNISOLONE
     Indication: Sjogren^s syndrome
  5. PREDNISOLONE [Concomitant]
     Active Substance: PREDNISOLONE
  6. AZATHIOPRINE [Concomitant]
     Active Substance: AZATHIOPRINE
     Indication: Sjogren^s syndrome
  7. AZATHIOPRINE [Concomitant]
     Active Substance: AZATHIOPRINE

REACTIONS (3)
  - Quadriplegia [Unknown]
  - Hypokalaemia [Unknown]
  - Intentional product misuse [Unknown]
